FAERS Safety Report 14532015 (Version 2)
Quarter: 2018Q1

REPORT INFORMATION
  Report Type: Report from Study
  Country: CO (occurrence: CO)
  Receive Date: 20180214
  Receipt Date: 20180314
  Transmission Date: 20180509
  Serious: Yes (Hospitalization, Other)
  Sender: FDA-Public Use
  Company Number: PHHY2018CO021405

PATIENT
  Sex: Female
  Weight: 81 kg

DRUGS (3)
  1. ACETAMINOPHEN. [Concomitant]
     Active Substance: ACETAMINOPHEN
     Indication: PRODUCT USED FOR UNKNOWN INDICATION
     Route: 065
  2. REVOLADE [Suspect]
     Active Substance: ELTROMBOPAG
     Dosage: 1 DF, UNK(EVERY 8 DAYS)
     Route: 048
  3. REVOLADE [Suspect]
     Active Substance: ELTROMBOPAG
     Indication: IMMUNE THROMBOCYTOPENIC PURPURA
     Dosage: 25 MG, (EVERY FOUR DAY)
     Route: 048
     Dates: start: 20160219

REACTIONS (6)
  - Infarction [Unknown]
  - Platelet count decreased [Unknown]
  - Thrombosis [Unknown]
  - Cough [Recovered/Resolved]
  - Inappropriate schedule of drug administration [Unknown]
  - Bronchitis [Recovered/Resolved]
